FAERS Safety Report 6575794-X (Version None)
Quarter: 2010Q1

REPORT INFORMATION
  Report Type: 
  Country: None (occurrence: None)
  Receive Date: 20100208
  Receipt Date: 20100208
  Transmission Date: 20100710
  Serious: Yes (Life-Threatening)
  Sender: FDA-Public Use
  Company Number: None

PATIENT
  Age: 82 Year
  Sex: Female
  Weight: 49.8957 kg

DRUGS (1)
  1. NAMENDA [Suspect]
     Indication: DEMENTIA ALZHEIMER'S TYPE
     Dosage: 1 TAB TWICE A DAY PO
     Route: 048
     Dates: start: 20090415, end: 20100126

REACTIONS (14)
  - ABASIA [None]
  - ACTIVITIES OF DAILY LIVING IMPAIRED [None]
  - BALANCE DISORDER [None]
  - CONVULSION [None]
  - EATING DISORDER [None]
  - FALL [None]
  - HYPERSOMNIA [None]
  - HYPOKINESIA [None]
  - MASTICATION DISORDER [None]
  - MUSCLE CONTRACTURE [None]
  - MUSCULOSKELETAL STIFFNESS [None]
  - RESPIRATORY DISORDER [None]
  - SPEECH DISORDER [None]
  - SUBDURAL HAEMATOMA [None]
